FAERS Safety Report 7363542-5 (Version None)
Quarter: 2011Q1

REPORT INFORMATION
  Report Type: 
  Country: None (occurrence: None)
  Receive Date: 20110321
  Receipt Date: 20110308
  Transmission Date: 20110831
  Serious: Yes (Other)
  Sender: FDA-Public Use
  Company Number: FI-JNJFOC-20110304498

PATIENT
  Sex: Male

DRUGS (6)
  1. REMICADE [Suspect]
     Route: 042
  2. REMICADE [Suspect]
     Indication: ARTHROPATHY
     Route: 042
  3. REMICADE [Suspect]
     Route: 042
  4. REMICADE [Suspect]
     Route: 042
  5. REMICADE [Suspect]
     Dosage: INFUSION RATE: 125ML/HOUR
     Route: 042
  6. REMICADE [Suspect]
     Indication: COLITIS ULCERATIVE
     Dosage: INFUSION RATE: 125ML/HOUR
     Route: 042

REACTIONS (5)
  - BUCCAL MUCOSAL ROUGHENING [None]
  - SURGERY [None]
  - HYPERSENSITIVITY [None]
  - DRUG INEFFECTIVE [None]
  - INFUSION RELATED REACTION [None]
